FAERS Safety Report 7110458-5 (Version None)
Quarter: 2010Q4

REPORT INFORMATION
  Report Type: 
  Country: None (occurrence: None)
  Receive Date: 20101116
  Receipt Date: 20101116
  Transmission Date: 20110411
  Serious: Yes (Other)
  Sender: FDA-Public Use
  Company Number: None

PATIENT
  Age: 39 Year
  Sex: Female
  Weight: 62.1428 kg

DRUGS (1)
  1. SYNTHROID [Suspect]
     Indication: THYROID CANCER
     Dosage: 125 MCG DAILY PO
     Route: 048
     Dates: start: 20100501, end: 20101110

REACTIONS (2)
  - BLOOD THYROID STIMULATING HORMONE INCREASED [None]
  - PRODUCT SUBSTITUTION ISSUE [None]
